FAERS Safety Report 5266875-1 (Version None)
Quarter: 2007Q1

REPORT INFORMATION
  Report Type: 
  Country: None (occurrence: None)
  Receive Date: 20061213
  Receipt Date: 20030130
  Transmission Date: 20070707
  Serious: Yes (Hospitalization)
  Sender: FDA-Public Use
  Company Number: 2002UW06081

PATIENT
  Age: 74 Year
  Sex: Female

DRUGS (7)
  1. ARIMIDEX [Suspect]
     Indication: BREAST CANCER
     Dosage: 1 MG DAILY PO
     Route: 048
     Dates: start: 19980303, end: 20020404
  2. NOLVADEX [Suspect]
     Indication: BREAST CANCER
     Dosage: 20 MG DAILY PO
     Route: 048
     Dates: start: 19980303, end: 20020404
  3. LOPRESSOR [Concomitant]
  4. MAGNESIUM OXIDE [Concomitant]
  5. PEPCID [Concomitant]
  6. COUMADIN [Concomitant]
  7. LANOXIN [Concomitant]

REACTIONS (1)
  - ENDOMETRIAL CANCER [None]
